FAERS Safety Report 6345591-9 (Version None)
Quarter: 2009Q3

REPORT INFORMATION
  Report Type: 
  Country: None (occurrence: None)
  Receive Date: 20090909
  Receipt Date: 20090902
  Transmission Date: 20100115
  Serious: Yes (Disabling)
  Sender: FDA-Public Use
  Company Number: US-BAYER-200931971NA

PATIENT
  Age: 69 Year
  Sex: Male

DRUGS (2)
  1. SORAFENIB [Suspect]
     Indication: NON-SMALL CELL LUNG CANCER
     Dosage: TOTAL DAILY DOSE: 400 MG  UNIT DOSE: 200 MG
     Route: 048
     Dates: start: 20090716, end: 20090803
  2. ARQ 197 [Suspect]
     Indication: NON-SMALL CELL LUNG CANCER
     Dosage: TOTAL DAILY DOSE: 720 MG  UNIT DOSE: 360 MG
     Route: 048
     Dates: start: 20090716, end: 20090803

REACTIONS (3)
  - BLINDNESS UNILATERAL [None]
  - COUGH [None]
  - SINUS HEADACHE [None]
